FAERS Safety Report 5253984-6 (Version None)
Quarter: 2007Q1

REPORT INFORMATION
  Report Type: 
  Country: None (occurrence: None)
  Receive Date: 20070228
  Receipt Date: 20070228
  Transmission Date: 20070707
  Serious: Yes (Hospitalization)
  Sender: FDA-Public Use
  Company Number: None

PATIENT
  Age: 54 Year
  Sex: Male
  Weight: 94 kg

DRUGS (9)
  1. IMATINIB MESYLATE (GLEEVAC) NOVARTIS, 500 MG BID [Suspect]
     Indication: BRAIN NEOPLASM
     Dosage: 500 MG PO BID
     Route: 048
     Dates: start: 20070131, end: 20070207
  2. TEMOZOLOMIDE, SCHERING-PLOUGH, 200 MG/M2 [Suspect]
     Indication: BRAIN NEOPLASM
     Dosage: 200 MG/M2 PO DAILY
     Route: 048
     Dates: start: 20070204, end: 20070207
  3. PRILOSEC [Concomitant]
  4. EFFEXOR XR [Concomitant]
  5. METHADONE HCL [Concomitant]
  6. DARVOCET [Concomitant]
  7. AMITRIPTYLINE HCL [Concomitant]
  8. STOOL SOFTENERS [Concomitant]
  9. MULTI-VITAMIN [Concomitant]

REACTIONS (5)
  - CEREBRAL HAEMORRHAGE [None]
  - DEEP VEIN THROMBOSIS [None]
  - NEOPLASM PROGRESSION [None]
  - PULMONARY EMBOLISM [None]
  - PULMONARY THROMBOSIS [None]
